FAERS Safety Report 10010662 (Version 2)
Quarter: 2014Q1

REPORT INFORMATION
  Report Type: Spontaneous
  Country: US (occurrence: US)
  Receive Date: 20140314
  Receipt Date: 20140314
  Transmission Date: 20141002
  Serious: No
  Sender: FDA-Public Use
  Company Number: US-DRREDDYS-USA/USA/13/0028212

PATIENT
  Age: 77 Year
  Sex: Female
  Weight: 90.8 kg

DRUGS (2)
  1. CETIRIZINE 10 MG [Suspect]
     Indication: SNEEZING
     Route: 048
  2. CETIRIZINE 10 MG [Suspect]
     Indication: RHINORRHOEA

REACTIONS (2)
  - Drug effect decreased [Not Recovered/Not Resolved]
  - Product quality issue [Unknown]
